FAERS Safety Report 5270048-6 (Version None)
Quarter: 2007Q1

REPORT INFORMATION
  Report Type: 
  Country: None (occurrence: None)
  Receive Date: 20070320
  Receipt Date: 20070312
  Transmission Date: 20070707
  Serious: Yes (Hospitalization)
  Sender: FDA-Public Use
  Company Number: ES-ELI_LILLY_AND_COMPANY-ES200703002865

PATIENT
  Age: 51 Year
  Sex: Female

DRUGS (4)
  1. FORTEO [Suspect]
     Indication: OSTEOPOROSIS
  2. CLAVERSAL [Concomitant]
  3. DACORTIN [Concomitant]
     Dates: end: 20061101
  4. AZATHIOPRINE SODIUM [Concomitant]
     Dates: end: 20061201

REACTIONS (4)
  - COLITIS [None]
  - CROHN'S DISEASE [None]
  - PYREXIA [None]
  - VOMITING [None]
